FAERS Safety Report 8963818 (Version 1)
Quarter: 2012Q4

REPORT INFORMATION
  Report Type: Report from Study
  Country: US (occurrence: US)
  Receive Date: 20121214
  Receipt Date: 20121214
  Transmission Date: 20130627
  Serious: Yes (Hospitalization)
  Sender: FDA-Public Use
  Company Number: US-009507513-1212USA004297

PATIENT
  Age: 61 Year
  Sex: Male
  Weight: 91.9 kg

DRUGS (8)
  1. TEMODAR [Suspect]
     Indication: GLIOBLASTOMA
     Dosage: 260 mg, days 1-5/cycle
     Route: 048
     Dates: start: 20100207
  2. BEVACIZUMAB [Suspect]
     Indication: GLIOBLASTOMA
     Dosage: 911 mg, qow
     Route: 042
     Dates: start: 20100207
  3. TOPOTECAN [Suspect]
     Indication: GLIOBLASTOMA
     Dosage: 2.25 mg, days 2-7 per cycle
     Route: 048
     Dates: start: 20110208
  4. KEPPRA [Concomitant]
     Dosage: 200 mg
  5. PRILOSEC [Concomitant]
     Dosage: total daily dose; 20 mg
  6. PROZAC [Concomitant]
     Dosage: total daily dose: 20 mg
  7. LISINOPRIL [Concomitant]
     Dosage: total daily dose: 20 mg
  8. KLOR-CON [Concomitant]
     Dosage: total daily dose; 20 MEq

REACTIONS (2)
  - Urinary tract infection [Unknown]
  - Convulsion [Unknown]
